FAERS Safety Report 4435790-5 (Version None)
Quarter: 2004Q3

REPORT INFORMATION
  Report Type: 
  Country: None (occurrence: None)
  Receive Date: 20040826
  Receipt Date: 20040814
  Transmission Date: 20050211
  Serious: Yes (Death, Hospitalization, Other)
  Sender: FDA-Public Use
  Company Number: US-2004-025467

PATIENT
  Age: 60 Year
  Sex: Female

DRUGS (1)
  1. BETASERON [Suspect]
     Indication: MULTIPLE SCLEROSIS
     Dosage: 8 MIU, EVERY 2D, SUBCUTANEOUS
     Route: 058
     Dates: start: 20031101, end: 20040115

REACTIONS (11)
  - COLOSTOMY [None]
  - CONDITION AGGRAVATED [None]
  - DECREASED APPETITE [None]
  - DECUBITUS ULCER [None]
  - DYSPNOEA [None]
  - INFECTED SKIN ULCER [None]
  - MULTIPLE SCLEROSIS [None]
  - PARAESTHESIA [None]
  - SPINAL CORD COMPRESSION [None]
  - VISUAL DISTURBANCE [None]
  - WHITE BLOOD CELL DISORDER [None]
